FAERS Safety Report 4697811-4 (Version None)
Quarter: 2005Q2

REPORT INFORMATION
  Report Type: 
  Country: None (occurrence: None)
  Receive Date: 20050119
  Receipt Date: 20050119
  Transmission Date: 20051028
  Serious: Yes (Other)
  Sender: FDA-Public Use
  Company Number: None

PATIENT
  Age: 60 Year
  Sex: Male
  Weight: 92.9874 kg

DRUGS (1)
  1. HYTRIN [Suspect]
     Indication: HYPERTENSION
     Dosage: TWO PO QHS
     Route: 048
     Dates: start: 19990101, end: 20040901

REACTIONS (1)
  - HEADACHE [None]
